FAERS Safety Report 14413229 (Version 1)
Quarter: 2018Q1

REPORT INFORMATION
  Report Type: Spontaneous
  Country: CA (occurrence: CA)
  Receive Date: 20180119
  Receipt Date: 20180119
  Transmission Date: 20180509
  Serious: Yes (Hospitalization)
  Sender: FDA-Public Use
  Company Number: CA-LPDUSPRD-20180027

PATIENT
  Age: 34 Year
  Sex: Female
  Weight: 59 kg

DRUGS (6)
  1. FERAMAX [Concomitant]
     Active Substance: IRON\POLYSACCHARIDES
     Dosage: 150 MG TWICE DAILY
     Route: 048
  2. MEZAVANT [Concomitant]
     Active Substance: MESALAMINE
     Dosage: TWO TABLETS DAILY
     Route: 065
  3. MATERNA [Concomitant]
     Active Substance: MINERALS\VITAMINS
     Dosage: ONE TABLET DAILY
     Route: 048
  4. VENOFER [Suspect]
     Active Substance: IRON SUCROSE
     Dosage: UNKNOWN
     Route: 042
     Dates: start: 20180103, end: 20180103
  5. CHOLECALCIFEROL [Concomitant]
     Active Substance: CHOLECALCIFEROL
     Dosage: 1000 UNITS DAILY
     Route: 048
  6. URSODIOL. [Concomitant]
     Active Substance: URSODIOL
     Dosage: 250 MG TWICE DAILY
     Route: 048

REACTIONS (6)
  - Malaise [Unknown]
  - Dizziness [Unknown]
  - Product use in unapproved indication [Unknown]
  - Hypotension [Unknown]
  - Hyperhidrosis [Unknown]
  - Exposure during pregnancy [Unknown]

NARRATIVE: CASE EVENT DATE: 20180103
